FAERS Safety Report 25593216 (Version 1)
Quarter: 2025Q3

REPORT INFORMATION
  Report Type: Spontaneous
  Country: CH (occurrence: CH)
  Receive Date: 20250722
  Receipt Date: 20250722
  Transmission Date: 20251020
  Serious: Yes (Hospitalization)
  Sender: MERCK SHARP & DOHME LLC
  Company Number: None

PATIENT
  Age: 75 Year
  Sex: Female
  Weight: 57.9 kg

DRUGS (13)
  1. KEYTRUDA [Suspect]
     Active Substance: PEMBROLIZUMAB
  2. SODIUM PICOSULFATE [Concomitant]
     Active Substance: SODIUM PICOSULFATE
  3. TORSEMIDE [Concomitant]
     Active Substance: TORSEMIDE
  4. Nebivolol Axapharm [Concomitant]
  5. DEXAMETHASONE [Concomitant]
     Active Substance: DEXAMETHASONE
  6. SYMBICORT [Concomitant]
     Active Substance: BUDESONIDE\FORMOTEROL FUMARATE DIHYDRATE
  7. MAGNESIUM ASPARTATE HYDROCHLORIDE [Concomitant]
     Active Substance: MAGNESIUM ASPARTATE HYDROCHLORIDE
  8. MOTILIUM [Concomitant]
     Active Substance: DOMPERIDONE
  9. XARELTO [Concomitant]
     Active Substance: RIVAROXABAN
  10. CANDESARTAN [Concomitant]
     Active Substance: CANDESARTAN
  11. ROSUVASTATIN CALCIUM [Concomitant]
     Active Substance: ROSUVASTATIN CALCIUM
  12. CARBOPLATIN [Suspect]
     Active Substance: CARBOPLATIN
  13. PEMETREXED [Suspect]
     Active Substance: PEMETREXED

REACTIONS (3)
  - Pancytopenia [Recovering/Resolving]
  - Septic shock [Recovering/Resolving]
  - Neutropenic colitis [Recovering/Resolving]

NARRATIVE: CASE EVENT DATE: 20250608
